FAERS Safety Report 12384623 (Version 1)
Quarter: 2016Q2

REPORT INFORMATION
  Report Type: Spontaneous
  Country: None (occurrence: None)
  Receive Date: 20160518
  Receipt Date: 20160518
  Transmission Date: 20160815
  Serious: Yes (Other)
  Sender: FDA-Public Use
  Company Number: None

PATIENT
  Sex: Female
  Weight: 58.51 kg

DRUGS (7)
  1. CRESTOR [Suspect]
     Active Substance: ROSUVASTATIN CALCIUM
     Indication: BLOOD CHOLESTEROL
     Route: 048
  2. ESTRACE [Concomitant]
     Active Substance: ESTRADIOL
  3. OMEGA 3 [Concomitant]
     Active Substance: OMEGA-3 FATTY ACIDS
  4. BETAMETHASONE. [Concomitant]
     Active Substance: BETAMETHASONE
  5. LATANOPROST. [Concomitant]
     Active Substance: LATANOPROST
  6. MULTI VIT [Concomitant]
  7. CALCIUM [Concomitant]
     Active Substance: CALCIUM

REACTIONS (10)
  - Fall [None]
  - Skin abrasion [None]
  - Pain in extremity [None]
  - Pruritus [None]
  - Infection [None]
  - Joint injury [None]
  - Asthenia [None]
  - Back injury [None]
  - Myalgia [None]
  - Peripheral swelling [None]
